FAERS Safety Report 11062777 (Version 5)
Quarter: 2015Q2

REPORT INFORMATION
  Report Type: Spontaneous
  Country: US (occurrence: US)
  Receive Date: 20150424
  Receipt Date: 20150622
  Transmission Date: 20150821
  Serious: Yes (Other)
  Sender: FDA-Public Use
  Company Number: US-JNJFOC-20141014181

PATIENT
  Sex: Male

DRUGS (3)
  1. RISPERIDONE. [Suspect]
     Active Substance: RISPERIDONE
     Indication: ATTENTION DEFICIT/HYPERACTIVITY DISORDER
     Route: 048
  2. CONCERTA [Concomitant]
     Active Substance: METHYLPHENIDATE HYDROCHLORIDE
     Indication: PRODUCT USED FOR UNKNOWN INDICATION
     Route: 048
  3. RISPERIDONE. [Suspect]
     Active Substance: RISPERIDONE
     Indication: ATTENTION DEFICIT/HYPERACTIVITY DISORDER
     Route: 048
     Dates: start: 200009, end: 200404

REACTIONS (8)
  - Overweight [Not Recovered/Not Resolved]
  - Muscle twitching [Unknown]
  - Emotional distress [Unknown]
  - Suicidal ideation [Unknown]
  - Product use issue [Unknown]
  - Gynaecomastia [Recovering/Resolving]
  - Depression [Not Recovered/Not Resolved]
  - Feeling abnormal [Unknown]
